FAERS Safety Report 7806650-4 (Version None)
Quarter: 2011Q4

REPORT INFORMATION
  Report Type: 
  Country: None (occurrence: None)
  Receive Date: 20111007
  Receipt Date: 20111007
  Transmission Date: 20120403
  Serious: Yes (Hospitalization)
  Sender: FDA-Public Use
  Company Number: None

PATIENT
  Age: 63 Year
  Sex: Male
  Weight: 62.4 kg

DRUGS (15)
  1. ZOVIRAX [Concomitant]
  2. LORTAB [Concomitant]
  3. ENOXAPARIN [Concomitant]
  4. LACTOLOSE [Concomitant]
  5. DEXILANT [Concomitant]
  6. GRAVIOLA [Concomitant]
  7. MIRILAX [Concomitant]
  8. OXYCONTIN [Concomitant]
  9. MULTI-VITAMIN [Concomitant]
  10. SENNA [Concomitant]
  11. RM-1-ULTRA IMMUNE FORMULA [Concomitant]
  12. AVASTIN [Suspect]
     Dosage: 5MG/KG, EVERY TWO WEEKS
     Dates: start: 20110817
  13. AVASTIN [Suspect]
     Dosage: 5MG/KG, EVERY TWO WEEKS
     Dates: start: 20110921
  14. AVASTIN [Suspect]
     Dosage: 5MG/KG, EVERY TWO WEEKS
     Dates: start: 20110831
  15. ZOFRAN [Concomitant]

REACTIONS (1)
  - ANAEMIA [None]
